FAERS Safety Report 7946450-8 (Version None)
Quarter: 2011Q4

REPORT INFORMATION
  Report Type: 
  Country: None (occurrence: None)
  Receive Date: 20111129
  Receipt Date: 20110825
  Transmission Date: 20120403
  Serious: No
  Sender: FDA-Public Use
  Company Number: US-BAYER-2011-082658

PATIENT
  Age: 89 Year
  Sex: Female
  Weight: 66 kg

DRUGS (3)
  1. ALEVE (CAPLET) [Suspect]
     Indication: HEADACHE
     Dosage: 1 DF, QD
     Route: 048
     Dates: start: 20110825
  2. ANTIHYPERTENSIVES [Concomitant]
  3. ALEVE (CAPLET) [Suspect]
     Indication: ANALGESIC THERAPY

REACTIONS (1)
  - HEADACHE [None]
